FAERS Safety Report 7989772-7 (Version None)
Quarter: 2011Q4

REPORT INFORMATION
  Report Type: 
  Country: None (occurrence: None)
  Receive Date: 20111219
  Receipt Date: 20110103
  Transmission Date: 20120403
  Serious: No
  Sender: FDA-Public Use
  Company Number: US-ASTRAZENECA-2011SE00144

PATIENT
  Age: 79 Year
  Sex: Female
  Weight: 57.6 kg

DRUGS (6)
  1. CRESTOR [Suspect]
     Route: 048
  2. FUROSEMIDE [Concomitant]
  3. AVAPRO [Concomitant]
  4. OMEPRAZOLE [Concomitant]
  5. WARFARIN SODIUM [Concomitant]
  6. MULTAC [Concomitant]

REACTIONS (3)
  - HYPOAESTHESIA [None]
  - BONE PAIN [None]
  - LIMB DISCOMFORT [None]
